FAERS Safety Report 24027076 (Version 1)
Quarter: 2024Q2

REPORT INFORMATION
  Report Type: Report from Study
  Country: ES (occurrence: ES)
  Receive Date: 20240628
  Receipt Date: 20240628
  Transmission Date: 20240716
  Serious: No
  Sender: FDA-Public Use
  Company Number: ES-ROCHE-3193912

PATIENT
  Age: 65 Year

DRUGS (1)
  1. ALECTINIB [Suspect]
     Active Substance: ALECTINIB
     Indication: Non-small cell lung cancer
     Route: 065
     Dates: start: 20220803

REACTIONS (6)
  - Vomiting [Unknown]
  - Anaemia [Unknown]
  - Ectropion [Unknown]
  - Abdominal pain upper [Unknown]
  - Blood bilirubin increased [Unknown]
  - Diarrhoea [Unknown]

NARRATIVE: CASE EVENT DATE: 20220818
